FAERS Safety Report 7012553-8 (Version None)
Quarter: 2010Q3

REPORT INFORMATION
  Report Type: 
  Country: None (occurrence: None)
  Receive Date: 20100924
  Receipt Date: 20100804
  Transmission Date: 20110219
  Serious: No
  Sender: FDA-Public Use
  Company Number: US-JNJFOC-20100801225

PATIENT
  Sex: Male

DRUGS (4)
  1. INVEGA SUSTENNA [Suspect]
     Indication: PSYCHOTIC DISORDER
     Route: 030
  2. INVEGA SUSTENNA [Suspect]
     Dosage: 2ND INITIATION DOSE
     Route: 030
  3. TRAZODONE HCL [Concomitant]
     Indication: SLEEP DISORDER
  4. PROPRANOLOL [Concomitant]
     Indication: AKATHISIA

REACTIONS (2)
  - AKATHISIA [None]
  - RESTLESSNESS [None]
